FAERS Safety Report 10883202 (Version 1)
Quarter: 2015Q1

REPORT INFORMATION
  Report Type: Spontaneous
  Country: US (occurrence: None)
  Receive Date: 20150226
  Receipt Date: 20150226
  Transmission Date: 20150721
  Serious: No
  Sender: FDA-Public Use
  Company Number: None

PATIENT
  Age: 53 Year
  Sex: Female
  Weight: 108.86 kg

DRUGS (3)
  1. LISONIPRIL [Concomitant]
  2. SYNVISC [Suspect]
     Active Substance: HYALURONATE SODIUM
     Indication: ARTHRALGIA
     Dosage: GIVEN INTO/UNDER THE SKIN
     Dates: start: 20141230
  3. MULTIVITAMINS [Concomitant]
     Active Substance: VITAMINS

REACTIONS (5)
  - Feeling hot [None]
  - Condition aggravated [None]
  - Injection site discomfort [None]
  - Joint swelling [None]
  - Arthralgia [None]

NARRATIVE: CASE EVENT DATE: 20141230
